FAERS Safety Report 24116052 (Version 1)
Quarter: 2024Q3

REPORT INFORMATION
  Report Type: Spontaneous
  Country: US (occurrence: US)
  Receive Date: 20240722
  Receipt Date: 20240722
  Transmission Date: 20241016
  Serious: Yes (Hospitalization, Disabling)
  Sender: ASPIRO PHARMA
  Company Number: US-ASPIRO-ASP2024US02320

PATIENT
  Age: 38 Year
  Sex: Female
  Weight: 63.5 kg

DRUGS (3)
  1. BUPIVACAINE [Suspect]
     Active Substance: BUPIVACAINE
     Indication: Spinal anaesthesia
     Dosage: 1 TOTAL, SINGLE-SHOT WITH 25-GAUGE PENCIL-TIP NEEDLE
     Route: 008
  2. FENTANYL [Suspect]
     Active Substance: FENTANYL\FENTANYL CITRATE
     Indication: Spinal anaesthesia
     Dosage: 1 TOTAL, SINGLE-SHOT WITH 25-GAUGE PENCIL-TIP NEEDLE
     Route: 008
  3. MORPHINE [Suspect]
     Active Substance: MORPHINE
     Indication: Spinal anaesthesia
     Dosage: 1 TOTAL, SINGLE-SHOT WITH 25-GAUGE PENCIL-TIP NEEDLE
     Route: 008

REACTIONS (3)
  - Anterior spinal artery syndrome [Recovering/Resolving]
  - Spinal cord infarction [Recovering/Resolving]
  - Maternal exposure during delivery [Unknown]
